FAERS Safety Report 11499869 (Version 1)
Quarter: 2015Q3

REPORT INFORMATION
  Report Type: Spontaneous
  Country: US (occurrence: US)
  Receive Date: 20150914
  Receipt Date: 20150914
  Transmission Date: 20151125
  Serious: Yes (Death, Other)
  Sender: FDA-Public Use
  Company Number: US-ELI_LILLY_AND_COMPANY-US201509002583

PATIENT
  Sex: Male

DRUGS (2)
  1. CYMBALTA [Suspect]
     Active Substance: DULOXETINE HYDROCHLORIDE
     Indication: ANXIETY
     Dosage: UNK UNK, UNKNOWN
     Route: 065
     Dates: start: 201104
  2. CYMBALTA [Suspect]
     Active Substance: DULOXETINE HYDROCHLORIDE
     Indication: BACK PAIN

REACTIONS (23)
  - Hallucination [Unknown]
  - Suicidal ideation [Unknown]
  - Seizure [Unknown]
  - Vertigo [Unknown]
  - Drug withdrawal syndrome [Unknown]
  - Completed suicide [Fatal]
  - Constipation [Unknown]
  - Fatigue [Unknown]
  - Confusional state [Unknown]
  - Agitation [Unknown]
  - Hyperhidrosis [Unknown]
  - Paraesthesia [Unknown]
  - Anxiety [Unknown]
  - Drug ineffective [Unknown]
  - Tremor [Unknown]
  - Irritability [Unknown]
  - Intentional self-injury [Unknown]
  - Nightmare [Unknown]
  - Insomnia [Unknown]
  - Diarrhoea [Unknown]
  - Dizziness [Unknown]
  - Influenza like illness [Unknown]
  - Nausea [Unknown]

NARRATIVE: CASE EVENT DATE: 201305
